FAERS Safety Report 7542924-2 (Version None)
Quarter: 2011Q2

REPORT INFORMATION
  Report Type: 
  Country: None (occurrence: None)
  Receive Date: 20110613
  Receipt Date: 20110601
  Transmission Date: 20111010
  Serious: Yes (Other)
  Sender: FDA-Public Use
  Company Number: PHHY2011US39661

PATIENT
  Sex: Male

DRUGS (2)
  1. GILENYA [Suspect]
     Dosage: 0.5 MG, QD
     Route: 048
     Dates: start: 20110405, end: 20110420
  2. BACLOFEN [Concomitant]
     Dosage: 10 MG, TID
     Dates: start: 20110505

REACTIONS (5)
  - HYPERSENSITIVITY [None]
  - EYE DISCHARGE [None]
  - EYE DISORDER [None]
  - SPEECH DISORDER [None]
  - HYPERSOMNIA [None]
